FAERS Safety Report 8506262-3 (Version None)
Quarter: 2012Q3

REPORT INFORMATION
  Report Type: 
  Country: None (occurrence: None)
  Receive Date: 20120712
  Receipt Date: 20120627
  Transmission Date: 20120928
  Serious: Yes (Disabling)
  Sender: FDA-Public Use
  Company Number: US-ROCHE-1082598

PATIENT
  Sex: Female
  Weight: 69.462 kg

DRUGS (3)
  1. VISTARIL [Concomitant]
  2. GLIPIZIDE [Concomitant]
  3. RANIBIZUMAB [Suspect]
     Indication: AGE-RELATED MACULAR DEGENERATION
     Dosage: ONE DOSE
     Route: 042
     Dates: start: 20060101

REACTIONS (5)
  - PAIN [None]
  - PRURITUS [None]
  - DEPRESSION [None]
  - RETINAL TEAR [None]
  - RASH [None]
